FAERS Safety Report 5904476-X (Version None)
Quarter: 2008Q4

REPORT INFORMATION
  Report Type: 
  Country: None (occurrence: None)
  Receive Date: 20081001
  Receipt Date: 20080926
  Transmission Date: 20090506
  Serious: Yes (Death, Hospitalization)
  Sender: FDA-Public Use
  Company Number: PHHO2008US01435

PATIENT
  Sex: Female
  Weight: 77.3 kg

DRUGS (1)
  1. TASIGNA [Suspect]
     Indication: GASTROINTESTINAL STROMAL TUMOUR
     Dosage: 400 MG, BID
     Route: 048
     Dates: start: 20080114, end: 20080122

REACTIONS (14)
  - ABDOMINAL DISTENSION [None]
  - ABDOMINAL PAIN [None]
  - ASCITES [None]
  - BLOOD CREATININE INCREASED [None]
  - CONSTIPATION [None]
  - DEATH [None]
  - DEHYDRATION [None]
  - GASTROINTESTINAL TUBE INSERTION [None]
  - HYPOTENSION [None]
  - MALIGNANT NEOPLASM PROGRESSION [None]
  - NAUSEA [None]
  - PARACENTESIS [None]
  - RENAL FAILURE ACUTE [None]
  - VOMITING [None]
